FAERS Safety Report 9061298 (Version 1)
Quarter: 2013Q3

REPORT INFORMATION
  Report Type: Spontaneous
  Country: US (occurrence: None)
  Receive Date: 20130208
  Receipt Date: 20130208
  Transmission Date: 20140515
  Serious: Yes (Hospitalization)
  Sender: FDA-Public Use
  Company Number: None

PATIENT
  Age: 75 Year
  Sex: Male
  Weight: 85.28 kg

DRUGS (9)
  1. DECITABINE [Suspect]
     Indication: MYELODYSPLASTIC SYNDROME
     Dates: start: 20110110, end: 20110615
  2. NEXIUM [Concomitant]
  3. GLYBURIDE [Concomitant]
  4. CIPROFLOXACIN [Concomitant]
  5. NAMENDA [Concomitant]
  6. EXELON [Concomitant]
  7. LOPRESSOR [Concomitant]
  8. NITRO [Concomitant]
  9. PLENDIL [Concomitant]

REACTIONS (9)
  - Confusional state [None]
  - Hyponatraemia [None]
  - Fungal infection [None]
  - Pneumonia aspiration [None]
  - Liver function test abnormal [None]
  - Neutropenia [None]
  - Productive cough [None]
  - Dyspnoea [None]
  - Pyrexia [None]
